FAERS Safety Report 5845213-7 (Version None)
Quarter: 2008Q3

REPORT INFORMATION
  Report Type: 
  Country: None (occurrence: None)
  Receive Date: 20080814
  Receipt Date: 20080806
  Transmission Date: 20090109
  Serious: Yes (Hospitalization)
  Sender: FDA-Public Use
  Company Number: A0739085A

PATIENT
  Age: 72 Year
  Sex: Male

DRUGS (14)
  1. AVANDIA [Suspect]
     Indication: TYPE 2 DIABETES MELLITUS
     Dosage: 2MG PER DAY
     Route: 048
  2. BYETTA [Concomitant]
  3. CLONIDINE [Concomitant]
  4. FUROSEMIDE [Concomitant]
  5. METOLAZONE [Concomitant]
  6. DIOVAN [Concomitant]
  7. NIFEDIPINE [Concomitant]
  8. GLIPIZIDE [Concomitant]
  9. HYDROCHLOROTHIAZIDE [Concomitant]
  10. LIPITOR [Concomitant]
  11. METHIMAZOLE [Concomitant]
  12. OMEPRAZOLE [Concomitant]
  13. METOPROLOL SUCCINATE [Concomitant]
  14. POTASSIUM CL [Concomitant]

REACTIONS (4)
  - CARDIAC FAILURE CONGESTIVE [None]
  - COELIAC DISEASE [None]
  - FLUID RETENTION [None]
  - WEIGHT DECREASED [None]
